FAERS Safety Report 24805995 (Version 2)
Quarter: 2025Q1

REPORT INFORMATION
  Report Type: Spontaneous
  Country: US (occurrence: US)
  Receive Date: 20250103
  Receipt Date: 20250217
  Transmission Date: 20250409
  Serious: No
  Sender: PFIZER
  Company Number: US-PFIZER INC-202400299346

PATIENT
  Age: 72 Year
  Sex: Male

DRUGS (1)
  1. LORBRENA [Interacting]
     Active Substance: LORLATINIB
     Indication: Lung carcinoma cell type unspecified stage IV
     Dosage: 75 MG, DAILY (3 TABLETS BY MOUTH DAILY)
     Route: 048
     Dates: start: 202408

REACTIONS (2)
  - Food interaction [Unknown]
  - Diarrhoea [Unknown]

NARRATIVE: CASE EVENT DATE: 20240101
